FAERS Safety Report 8316987-0 (Version None)
Quarter: 2012Q2

REPORT INFORMATION
  Report Type: 
  Country: None (occurrence: None)
  Receive Date: 20120425
  Receipt Date: 20120316
  Transmission Date: 20120825
  Serious: Yes (Other)
  Sender: FDA-Public Use
  Company Number: DKLU1077678

PATIENT
  Age: 11 Year
  Sex: Male

DRUGS (2)
  1. ONFI [Suspect]
     Indication: LENNOX-GASTAUT SYNDROME
     Dosage: 5 MG MILLIGRAM(S), 1 IN 1 D, ORAL; 5 MG MILLIGRAM(S), 2 IN 1 D, ORAL
     Route: 048
     Dates: start: 20120309
  2. ONFI [Suspect]
     Indication: LENNOX-GASTAUT SYNDROME
     Dosage: 5 MG MILLIGRAM(S), 1 IN 1 D, ORAL; 5 MG MILLIGRAM(S), 2 IN 1 D, ORAL
     Route: 048
     Dates: start: 20120201, end: 20120308

REACTIONS (3)
  - AGGRESSION [None]
  - SEDATION [None]
  - URINARY RETENTION [None]
